FAERS Safety Report 7705464-3 (Version None)
Quarter: 2011Q3

REPORT INFORMATION
  Report Type: 
  Country: None (occurrence: None)
  Receive Date: 20110823
  Receipt Date: 20110823
  Transmission Date: 20111222
  Serious: Yes (Hospitalization)
  Sender: FDA-Public Use
  Company Number: None

PATIENT
  Sex: Female
  Weight: 95.2554 kg

DRUGS (2)
  1. RANIBIZUMAB (GENENTECH) [Suspect]
     Indication: IRIS NEOVASCULARISATION
     Dosage: 0.5MG/MONTH INTRAVITREAL
     Dates: start: 20091211
  2. RANIBIZUMAB (GENENTECH) [Suspect]
     Indication: DIABETIC RETINOPATHY
     Dosage: 0.5MG/MONTH INTRAVITREAL
     Dates: start: 20100209

REACTIONS (1)
  - GASTRITIS [None]
